FAERS Safety Report 5873841-1 (Version None)
Quarter: 2008Q3

REPORT INFORMATION
  Report Type: 
  Country: None (occurrence: None)
  Receive Date: 20080903
  Receipt Date: 20080903
  Transmission Date: 20090109
  Serious: Yes (Hospitalization, Disabling)
  Sender: FDA-Public Use
  Company Number: None

PATIENT
  Age: 80 Year
  Sex: Female
  Weight: 76.2043 kg

DRUGS (1)
  1. ARICEPT [Suspect]
     Indication: DEMENTIA
     Dosage: 10MG DAILY PO
     Route: 048
     Dates: start: 20080704, end: 20080830

REACTIONS (7)
  - ABDOMINAL PAIN UPPER [None]
  - AGGRESSION [None]
  - HALLUCINATION [None]
  - HYPERTENSION [None]
  - NIGHTMARE [None]
  - PALPITATIONS [None]
  - PARANOIA [None]
